FAERS Safety Report 11373831 (Version 1)
Quarter: 2015Q3

REPORT INFORMATION
  Report Type: Spontaneous
  Country: US (occurrence: US)
  Receive Date: 20150811
  Receipt Date: 20150811
  Transmission Date: 20151125
  Serious: No
  Sender: FDA-Public Use
  Company Number: US-ELI_LILLY_AND_COMPANY-US201109006565

PATIENT
  Sex: Male

DRUGS (2)
  1. SPIRIVA [Concomitant]
     Active Substance: TIOTROPIUM BROMIDE MONOHYDRATE
  2. CIALIS [Suspect]
     Active Substance: TADALAFIL
     Indication: DYSPNOEA
     Dosage: 20 MG, QD
     Dates: start: 201001

REACTIONS (3)
  - Asthenia [Unknown]
  - Dyspnoea [Unknown]
  - Off label use [Unknown]
